FAERS Safety Report 7422518-X (Version None)
Quarter: 2011Q2

REPORT INFORMATION
  Report Type: 
  Country: None (occurrence: None)
  Receive Date: 20110419
  Receipt Date: 20110411
  Transmission Date: 20111010
  Serious: No
  Sender: FDA-Public Use
  Company Number: US-BIOGENIDEC-2011BI013335

PATIENT
  Age: 53 Year
  Sex: Female

DRUGS (1)
  1. AVONEX [Suspect]
     Indication: MULTIPLE SCLEROSIS
     Route: 030
     Dates: start: 20081201

REACTIONS (6)
  - CHILLS [None]
  - DEPRESSION [None]
  - INJECTION SITE ERYTHEMA [None]
  - PAIN [None]
  - DIPLOPIA [None]
  - FEELING COLD [None]
